FAERS Safety Report 15813484 (Version 1)
Quarter: 2019Q1

REPORT INFORMATION
  Report Type: Spontaneous
  Country: US (occurrence: US)
  Receive Date: 20190111
  Receipt Date: 20190111
  Transmission Date: 20190417
  Serious: Yes (Hospitalization)
  Sender: FDA-Public Use
  Company Number: None

PATIENT
  Age: 67 Year
  Sex: Female
  Weight: 90 kg

DRUGS (17)
  1. AKYNZEO [Suspect]
     Active Substance: NETUPITANT\PALONOSETRON HYDROCHLORIDE
     Indication: NAUSEA
     Dosage: ?          OTHER FREQUENCY:PRIOR TO TREATMENT;?
     Route: 048
     Dates: start: 20180925
  2. LOSARTAN. [Concomitant]
     Active Substance: LOSARTAN
  3. CLINDAGEL [Concomitant]
     Active Substance: CLINDAMYCIN PHOSPHATE
  4. ZOLOFT [Concomitant]
     Active Substance: SERTRALINE HYDROCHLORIDE
  5. OMEPRAZOLE. [Concomitant]
     Active Substance: OMEPRAZOLE
  6. METFORMIN ER [Concomitant]
     Active Substance: METFORMIN HYDROCHLORIDE
  7. ZOFRAN [Concomitant]
     Active Substance: ONDANSETRON HYDROCHLORIDE
  8. NOVOLOG [Concomitant]
     Active Substance: INSULIN ASPART
  9. DOXYCYCLINE. [Concomitant]
     Active Substance: DOXYCYCLINE
  10. DEXAMETHASONE. [Concomitant]
     Active Substance: DEXAMETHASONE
  11. BACLOFEN. [Concomitant]
     Active Substance: BACLOFEN
  12. FLUOROURACIL. [Concomitant]
     Active Substance: FLUOROURACIL
  13. ASPIRIN. [Concomitant]
     Active Substance: ASPIRIN
  14. LORAZEPAM. [Concomitant]
     Active Substance: LORAZEPAM
  15. LANTUS SOLOSTAR [Concomitant]
     Active Substance: INSULIN GLARGINE
  16. AKYNZEO [Suspect]
     Active Substance: NETUPITANT\PALONOSETRON HYDROCHLORIDE
     Indication: VOMITING
     Dosage: ?          OTHER FREQUENCY:PRIOR TO TREATMENT;?
     Route: 048
     Dates: start: 20180925
  17. CRESTOR [Concomitant]
     Active Substance: ROSUVASTATIN CALCIUM

REACTIONS (1)
  - Post procedural complication [None]
